FAERS Safety Report 8719909 (Version 2)
Quarter: 2012Q4

REPORT INFORMATION
  Report Type: 
  Country: US (occurrence: US)
  Receive Date: 20120813
  Receipt Date: 20121019
  Transmission Date: 20130627
  Serious: Yes (Hospitalization)
  Sender: FDA-Public Use
  Company Number: US-BAYER-2012-079687

PATIENT
  Age: 38 Year
  Sex: Female
  Weight: 57.6 kg

DRUGS (4)
  1. YAZ [Suspect]
     Indication: CONTRACEPTION
     Dosage: UNK
     Dates: start: 200703, end: 20080219
  2. LEVAQUIN [Concomitant]
     Dosage: 750 mg, Qday
     Route: 048
  3. PRENATAL [Concomitant]
     Dosage: 1 Qday
     Route: 048
  4. ALLEGRO [Concomitant]

REACTIONS (3)
  - Deep vein thrombosis [None]
  - Injury [None]
  - Oedema peripheral [None]
